FAERS Safety Report 24750946 (Version 2)
Quarter: 2025Q2

REPORT INFORMATION
  Report Type: Report from Study
  Country: US (occurrence: US)
  Receive Date: 20241219
  Receipt Date: 20250513
  Transmission Date: 20250717
  Serious: Yes (Hospitalization)
  Sender: ABBVIE
  Company Number: US-ABBVIE-6050766

PATIENT
  Age: 76 Year
  Sex: Male

DRUGS (3)
  1. VENCLEXTA [Suspect]
     Active Substance: VENETOCLAX
     Indication: Prostate cancer
     Route: 048
     Dates: start: 20240520
  2. VENCLEXTA [Suspect]
     Active Substance: VENETOCLAX
     Indication: Prostate cancer
     Route: 048
     Dates: start: 202412
  3. ORGOVYX [Concomitant]
     Active Substance: RELUGOLIX
     Indication: Prostate cancer
     Dates: start: 20241112

REACTIONS (6)
  - Clostridium difficile infection [Recovering/Resolving]
  - Bursitis [Unknown]
  - Diarrhoea [Recovered/Resolved]
  - Arthritis [Unknown]
  - Diarrhoea [Unknown]
  - Retching [Unknown]

NARRATIVE: CASE EVENT DATE: 20240101
